FAERS Safety Report 4751312-3 (Version None)
Quarter: 2005Q3

REPORT INFORMATION
  Report Type: 
  Country: None (occurrence: None)
  Receive Date: 20050822
  Receipt Date: 20050808
  Transmission Date: 20060218
  Serious: Yes (Other)
  Sender: FDA-Public Use
  Company Number: SUSI-2005-00623

PATIENT
  Age: 20 Year
  Sex: Male

DRUGS (10)
  1. MESALAZINE CONTROLLED RELEASE (MESALAZINE) CAPSULE CR [Suspect]
     Indication: CROHN'S DISEASE
     Dosage: ORAL
     Route: 048
  2. REMICADE [Suspect]
     Indication: CROHN'S DISEASE
     Dosage: 270.18 MG DAILY, INTRAVENOUS
     Route: 042
     Dates: start: 20020725
  3. VALPROATE SODIUM [Suspect]
     Indication: CONVULSION PROPHYLAXIS
     Dosage: 400 + 200 MG DAILY, ORAL
     Route: 048
     Dates: start: 20020907
  4. PREDNISONE [Suspect]
     Indication: CROHN'S DISEASE
     Dosage: ORAL
     Route: 048
  5. PREDNISOLONE ACETATE [Suspect]
     Indication: CROHN'S DISEASE
     Dosage: INTRAVENOUS
     Route: 042
  6. AMPHOTERICIN B [Concomitant]
  7. CEFAMEZIN ^FIJISAWA^ (CEFAZOLIN SODIUM) [Concomitant]
  8. CEFMETAZON (CEFMETAZOLE SODIUM) [Concomitant]
  9. ELENTAL (VITAMINS NOS) [Concomitant]
  10. LACTOBACILLUS BIFIDUS, LYOPHILIZED (LACTOBACILLUS BIFIDUS, LYOPHILIZED [Concomitant]

REACTIONS (4)
  - CYSTITIS [None]
  - DISEASE RECURRENCE [None]
  - EPILEPSY [None]
  - LOSS OF CONSCIOUSNESS [None]
